FAERS Safety Report 10723877 (Version 1)
Quarter: 2015Q1

REPORT INFORMATION
  Report Type: Spontaneous
  Country: DE (occurrence: DE)
  Receive Date: 20150120
  Receipt Date: 20150120
  Transmission Date: 20150721
  Serious: Yes (Other)
  Sender: FDA-Public Use
  Company Number: DE-GALDERMA-DE15000096

PATIENT
  Age: 56 Year
  Sex: Male
  Weight: 82 kg

DRUGS (3)
  1. METROCREAM [Concomitant]
     Active Substance: METRONIDAZOLE
     Route: 061
     Dates: start: 2014
  2. MIRVASO [Suspect]
     Active Substance: BRIMONIDINE TARTRATE
     Indication: ROSACEA
     Dosage: 0.33%
     Route: 061
     Dates: start: 201410, end: 20150103
  3. MIRVASO [Suspect]
     Active Substance: BRIMONIDINE TARTRATE
     Dosage: 0.33%
     Route: 061
     Dates: end: 20150104

REACTIONS (16)
  - Eczema infected [Recovering/Resolving]
  - Inappropriate schedule of drug administration [Recovered/Resolved]
  - Blood pressure decreased [Recovering/Resolving]
  - Skin swelling [Recovering/Resolving]
  - Malaise [Recovering/Resolving]
  - Chills [Recovering/Resolving]
  - Peripheral coldness [Recovering/Resolving]
  - Pruritus [Recovering/Resolving]
  - Heart rate decreased [Recovering/Resolving]
  - Dizziness [Unknown]
  - Skin disorder [Recovering/Resolving]
  - Condition aggravated [Recovering/Resolving]
  - Hypertension [Unknown]
  - Drug effect decreased [Unknown]
  - Feeling hot [Recovering/Resolving]
  - Body temperature increased [Recovering/Resolving]

NARRATIVE: CASE EVENT DATE: 2014
